FAERS Safety Report 4781934-5 (Version None)
Quarter: 2005Q3

REPORT INFORMATION
  Report Type: 
  Country: None (occurrence: None)
  Receive Date: 20050914
  Receipt Date: 20050104
  Transmission Date: 20060218
  Serious: Yes (Other)
  Sender: FDA-Public Use
  Company Number: 083-20785-04030700

PATIENT

DRUGS (4)
  1. THALIDOMIDE (THALIDOMIDE) (UNKNOWN) [Suspect]
     Indication: MULTIPLE MYELOMA
     Dosage: STARTING DOSE OF 100MG DAILY FOR 14 DAYS; THEN INCREASED TO 200MG FOR A TOTAL OF 4 MONTHS
  2. DEXAMETHASONE [Suspect]
     Indication: MULTIPLE MYELOMA
     Dosage: SEE IMAGE
  3. DOUBLE AUTOTRANSPLANTS [Concomitant]
  4. WARFARIN [Concomitant]

REACTIONS (1)
  - DEEP VEIN THROMBOSIS [None]
